FAERS Safety Report 8564296-7 (Version None)
Quarter: 2012Q3

REPORT INFORMATION
  Report Type: 
  Country: None (occurrence: None)
  Receive Date: 20120803
  Receipt Date: 20120802
  Transmission Date: 20120928
  Serious: Yes (Other)
  Sender: FDA-Public Use
  Company Number: JP-JNJFOC-20120711570

PATIENT
  Sex: Male
  Weight: 87 kg

DRUGS (5)
  1. STELARA [Suspect]
     Indication: PSORIASIS
     Route: 058
     Dates: start: 20111129
  2. STELARA [Suspect]
     Route: 058
     Dates: start: 20120221
  3. STELARA [Suspect]
     Route: 058
     Dates: start: 20120515
  4. STELARA [Suspect]
     Route: 058
     Dates: start: 20111101
  5. EPINASTINE HYDROCHLORIDE [Concomitant]
     Indication: PSORIASIS
     Route: 048
     Dates: start: 20120515

REACTIONS (1)
  - LACUNAR INFARCTION [None]
